FAERS Safety Report 6776019-2 (Version None)
Quarter: 2010Q2

REPORT INFORMATION
  Report Type: 
  Country: None (occurrence: None)
  Receive Date: 20100615
  Receipt Date: 20100604
  Transmission Date: 20101027
  Serious: Yes (Other)
  Sender: FDA-Public Use
  Company Number: 2010-00555

PATIENT
  Age: 80 Year
  Sex: Female

DRUGS (6)
  1. LEVETIRACETAM [Suspect]
     Indication: CONVULSION
     Dosage: 1000 MG (2 IN 1 D), ORAL, DAILY DOSE DECREASED. (2 IN 1 D) ORAL
     Route: 048
  2. AMIODARONE HYDROCHLORIDE [Suspect]
     Indication: ATRIAL FIBRILLATION
     Dosage: 400 MG (2 IN 1 D), ORAL, 200 MG 1 IN 1 D
     Route: 048
  3. PREGABALIN [Concomitant]
  4. LEVOTHYROXINE SODIUM [Concomitant]
  5. AMLODIPINE [Concomitant]
  6. TELMISARTAN [Concomitant]

REACTIONS (9)
  - ATRIAL FIBRILLATION [None]
  - CONFUSIONAL STATE [None]
  - DELIRIUM [None]
  - DEPRESSED LEVEL OF CONSCIOUSNESS [None]
  - DISTURBANCE IN ATTENTION [None]
  - IMPAIRED SELF-CARE [None]
  - MENTAL STATUS CHANGES [None]
  - PARANOIA [None]
  - SPEECH DISORDER [None]
